FAERS Safety Report 7058041-4 (Version None)
Quarter: 2010Q4

REPORT INFORMATION
  Report Type: 
  Country: None (occurrence: None)
  Receive Date: 20101021
  Receipt Date: 20101021
  Transmission Date: 20110411
  Serious: Yes (Other)
  Sender: FDA-Public Use
  Company Number: None

PATIENT
  Age: 29 Year
  Sex: Female
  Weight: 70.3075 kg

DRUGS (2)
  1. ONABOTULINUMTOXINA UNKNOWN UNKNOWN [Suspect]
     Indication: CYSTITIS INTERSTITIAL
     Dates: start: 20100923, end: 20100923
  2. ONABOTULINUMTOXINA UNKNOWN UNKNOWN [Suspect]
     Indication: PELVIC FLOOR DYSSYNERGIA
     Dates: start: 20100923, end: 20100923

REACTIONS (17)
  - DYSARTHRIA [None]
  - HALLUCINATION [None]
  - HEADACHE [None]
  - HYPERACUSIS [None]
  - HYPOAESTHESIA FACIAL [None]
  - HYPOAESTHESIA ORAL [None]
  - INFLUENZA LIKE ILLNESS [None]
  - MUSCLE SPASMS [None]
  - MUSCULAR WEAKNESS [None]
  - MUSCULOSKELETAL PAIN [None]
  - NECK PAIN [None]
  - OROPHARYNGEAL PAIN [None]
  - PHOTOSENSITIVITY REACTION [None]
  - SPEECH DISORDER [None]
  - SWOLLEN TONGUE [None]
  - TEMPERATURE INTOLERANCE [None]
  - WEIGHT DECREASED [None]
